FAERS Safety Report 17574893 (Version 2)
Quarter: 2020Q1

REPORT INFORMATION
  Report Type: Spontaneous
  Country: FR (occurrence: FR)
  Receive Date: 20200324
  Receipt Date: 20200327
  Transmission Date: 20200409
  Serious: Yes (Death)
  Sender: FDA-Public Use
  Company Number: FR-TEVA-2020-FR-1207822

PATIENT
  Age: 77 Year
  Sex: Male
  Weight: 71 kg

DRUGS (11)
  1. OXYNORMORO [Suspect]
     Active Substance: OXYCODONE HYDROCHLORIDE
     Indication: PAIN
     Route: 048
     Dates: end: 20200222
  2. AMLODIPINE [Suspect]
     Active Substance: AMLODIPINE BESYLATE
     Indication: HYPERTENSION
     Route: 048
     Dates: end: 20200222
  3. EUPANTOL [Suspect]
     Active Substance: PANTOPRAZOLE SODIUM
     Indication: GASTROOESOPHAGEAL REFLUX DISEASE
     Route: 048
     Dates: end: 20200222
  4. CLOXACILLINE [Suspect]
     Active Substance: CLOXACILLIN
     Indication: BACTERAEMIA
     Dosage: 3 GRAM
     Route: 048
     Dates: start: 20200211, end: 20200222
  5. PARACETAMOL [Suspect]
     Active Substance: ACETAMINOPHEN
     Indication: PAIN
     Route: 048
     Dates: start: 20200208, end: 20200219
  6. SPASFON [PHLOROGLUCINOL] [Suspect]
     Active Substance: PHLOROGLUCINOL
     Indication: NAUSEA
     Route: 048
     Dates: start: 20200208, end: 20200219
  7. OXYCONTIN [Suspect]
     Active Substance: OXYCODONE HYDROCHLORIDE
     Indication: PAIN
     Route: 048
     Dates: end: 20200222
  8. THERALENE [Suspect]
     Active Substance: TRIMEPRAZINE
     Indication: PRODUCT USED FOR UNKNOWN INDICATION
     Route: 048
     Dates: end: 20200219
  9. MACROGOL 4000 [Suspect]
     Active Substance: POLYETHYLENE GLYCOL 4000
     Indication: CONSTIPATION
     Route: 048
     Dates: start: 20200208, end: 20200222
  10. CLAMOXYL [AMOXICILLIN] [Suspect]
     Active Substance: AMOXICILLIN
     Indication: BACTERAEMIA
     Route: 048
     Dates: start: 20200214, end: 20200219
  11. SERESTA [Suspect]
     Active Substance: OXAZEPAM
     Indication: DEPRESSION
     Route: 048
     Dates: end: 20200222

REACTIONS (3)
  - Anuria [Fatal]
  - Acute kidney injury [Fatal]
  - Encephalopathy [Fatal]

NARRATIVE: CASE EVENT DATE: 20200217
